FAERS Safety Report 9701257 (Version 2)
Quarter: 2013Q4

REPORT INFORMATION
  Report Type: Spontaneous
  Country: US (occurrence: US)
  Receive Date: 20131121
  Receipt Date: 20131121
  Transmission Date: 20140711
  Serious: No
  Sender: FDA-Public Use
  Company Number: US-GILEAD-2008-0016085

PATIENT
  Age: 74 Year
  Sex: Female
  Weight: 86.18 kg

DRUGS (19)
  1. LETAIRIS [Suspect]
     Indication: PULMONARY ARTERIAL HYPERTENSION
     Route: 048
     Dates: start: 20080317
  2. CYMBALTA [Concomitant]
     Route: 048
  3. LASIX [Concomitant]
     Route: 048
  4. GLUCOTROL [Concomitant]
     Route: 048
  5. LIPITOR [Concomitant]
     Route: 048
  6. SYNTHROID [Concomitant]
     Route: 048
  7. IMDUR [Concomitant]
     Route: 048
  8. DIGOXIN [Concomitant]
     Route: 048
  9. NEXIUM [Concomitant]
     Route: 048
  10. ASPIRIN [Concomitant]
     Route: 048
  11. ALBUTEROL [Concomitant]
     Route: 048
  12. DITROPAN [Concomitant]
     Route: 048
  13. DAILY MULTIVITAMIN [Concomitant]
     Route: 048
  14. VITAMIN B12 [Concomitant]
     Route: 048
  15. VASOTEC [Concomitant]
     Route: 048
  16. OMNIPRED [Concomitant]
  17. VIGAMOX [Concomitant]
  18. NEVANAC [Concomitant]
     Route: 048
  19. ATENOLOL [Concomitant]
     Route: 048

REACTIONS (7)
  - Chest discomfort [Unknown]
  - Neck pain [Unknown]
  - Musculoskeletal pain [Unknown]
  - Chest pain [Unknown]
  - Painful respiration [Unknown]
  - Headache [Unknown]
  - Palpitations [Unknown]
